FAERS Safety Report 20152918 (Version 1)
Quarter: 2021Q4

REPORT INFORMATION
  Report Type: Spontaneous
  Country: US (occurrence: None)
  Receive Date: 20211206
  Receipt Date: 20211206
  Transmission Date: 20220303
  Serious: Yes (Other)
  Sender: FDA-Public Use
  Company Number: None

PATIENT
  Age: 68 Year
  Sex: Male
  Weight: 84 kg

DRUGS (1)
  1. TOCILIZUMAB [Suspect]
     Active Substance: TOCILIZUMAB
     Indication: COVID-19
     Dosage: FREQUENCY : ONCE;?
     Route: 042
     Dates: start: 20211125, end: 20211125

REACTIONS (4)
  - Condition aggravated [None]
  - Sputum culture positive [None]
  - Staphylococcal infection [None]
  - Citrobacter test positive [None]

NARRATIVE: CASE EVENT DATE: 20211130
